FAERS Safety Report 10072130 (Version 8)
Quarter: 2014Q4

REPORT INFORMATION
  Report Type: Spontaneous
  Country: US (occurrence: None)
  Receive Date: 20140409
  Receipt Date: 20141023
  Transmission Date: 20150528
  Serious: Yes (Hospitalization, Other)
  Sender: FDA-Public Use
  Company Number: AEGR000299

PATIENT
  Age: 39 Year
  Sex: Female
  Weight: 69.8 kg

DRUGS (17)
  1. XANAX [Concomitant]
     Active Substance: ALPRAZOLAM
  2. COLESTIPOL [Concomitant]
     Active Substance: COLESTIPOL
  3. METAMUCIL PLUS CALCIUM (CALCIUM CARBONATE, PLANTAGO OVATA HUSK) [Concomitant]
  4. EFFIENT [Concomitant]
     Active Substance: PRASUGREL HYDROCHLORIDE
  5. ZETIA [Concomitant]
     Active Substance: EZETIMIBE
  6. JUXTAPID [Suspect]
     Active Substance: LOMITAPIDE MESYLATE
     Indication: TYPE IIA HYPERLIPIDAEMIA
     Route: 048
     Dates: start: 20131203
  7. VICODIN [Concomitant]
     Active Substance: ACETAMINOPHEN\HYDROCODONE BITARTRATE
  8. ESTRACE [Concomitant]
     Active Substance: ESTRADIOL
  9. BILE ACID SEQUESTRANTS [Concomitant]
  10. ASPIRIN (ACETYLSALICYLIC ACID) [Concomitant]
     Active Substance: ASPIRIN
  11. ALPRAZOLAM (ALPRAZOLAM) [Concomitant]
     Active Substance: ALPRAZOLAM
  12. NITROGLYCERIN. [Concomitant]
     Active Substance: NITROGLYCERIN
  13. NIACIN. [Concomitant]
     Active Substance: NIACIN
  14. GABAPENTIN (GABAPENTIN) [Concomitant]
     Active Substance: GABAPENTIN
  15. PROAIR HFA [Concomitant]
     Active Substance: ALBUTEROL SULFATE
  16. QVAR [Concomitant]
     Active Substance: BECLOMETHASONE DIPROPIONATE
  17. CARVEDILOL (CARVEDILOL) [Concomitant]
     Active Substance: CARVEDILOL

REACTIONS (21)
  - Low density lipoprotein increased [None]
  - Fibromyalgia [None]
  - Pruritus [None]
  - Faecal incontinence [None]
  - Abdominal discomfort [None]
  - Vomiting [None]
  - Nausea [None]
  - Erythema [None]
  - Flatulence [None]
  - Kidney infection [None]
  - Drug ineffective [None]
  - Back pain [None]
  - Movement disorder [None]
  - Diarrhoea [None]
  - Dry skin [None]
  - Migraine [None]
  - Muscle spasms [None]
  - Abdominal pain upper [None]
  - Weight decreased [None]
  - Alanine aminotransferase increased [None]
  - Helicobacter infection [None]

NARRATIVE: CASE EVENT DATE: 201401
